FAERS Safety Report 7672557-9 (Version None)
Quarter: 2011Q3

REPORT INFORMATION
  Report Type: 
  Country: None (occurrence: None)
  Receive Date: 20110809
  Receipt Date: 20110801
  Transmission Date: 20111222
  Serious: Yes (Hospitalization)
  Sender: FDA-Public Use
  Company Number: US-SANOFI-AVENTIS-2011SA049107

PATIENT
  Age: 83 Year
  Sex: Female

DRUGS (3)
  1. CLOPIDOGREL BISULFATE [Suspect]
     Indication: ANTICOAGULANT THERAPY
     Route: 065
  2. ROSUVASTATIN [Concomitant]
  3. CARVEDILOL [Concomitant]

REACTIONS (8)
  - RASH PUSTULAR [None]
  - BLOOD CREATINE INCREASED [None]
  - ACUTE GENERALISED EXANTHEMATOUS PUSTULOSIS [None]
  - LEUKOCYTOSIS [None]
  - DYSPNOEA [None]
  - PYREXIA [None]
  - RASH ERYTHEMATOUS [None]
  - DERMATITIS EXFOLIATIVE [None]
